FAERS Safety Report 9110244 (Version 3)
Quarter: 2013Q2

REPORT INFORMATION
  Report Type: Report from Study
  Country: CA (occurrence: CA)
  Receive Date: 20130222
  Receipt Date: 20130510
  Transmission Date: 20140414
  Serious: Yes (Hospitalization, Other)
  Sender: FDA-Public Use
  Company Number: CA-ROCHE-1190487

PATIENT
  Sex: Female
  Weight: 59 kg

DRUGS (14)
  1. ACTEMRA [Suspect]
     Indication: RHEUMATOID ARTHRITIS
     Route: 042
     Dates: start: 20130206, end: 20130507
  2. PREDNISONE [Concomitant]
     Route: 065
  3. HYDROMORPHONE [Concomitant]
  4. SOFLAX (CANADA) [Concomitant]
     Route: 065
  5. VALSARTAN [Concomitant]
     Route: 048
  6. GABAPENTIN [Concomitant]
  7. ATORVASTATIN [Concomitant]
     Route: 065
  8. VENLAFAXINE [Concomitant]
     Route: 065
  9. AMLODIPINE [Concomitant]
     Route: 065
  10. SENOKOT [Concomitant]
     Route: 065
  11. MELOXICAM [Concomitant]
     Route: 065
  12. TECTA [Concomitant]
     Route: 065
  13. PRIMIDONE [Concomitant]
     Route: 065
  14. PRIMIDONE [Concomitant]
     Route: 065

REACTIONS (3)
  - Pneumonia [Recovered/Resolved]
  - Pulmonary oedema [Not Recovered/Not Resolved]
  - Infection [Unknown]
